FAERS Safety Report 19950244 (Version 1)
Quarter: 2021Q4

REPORT INFORMATION
  Report Type: Spontaneous
  Country: FR (occurrence: FR)
  Receive Date: 20211013
  Receipt Date: 20211013
  Transmission Date: 20220303
  Serious: Yes (Other)
  Sender: FDA-Public Use
  Company Number: FR-LUPIN PHARMACEUTICALS INC.-2021-19325

PATIENT
  Age: 77 Year
  Sex: Male

DRUGS (9)
  1. AZITHROMYCIN ANHYDROUS [Suspect]
     Active Substance: AZITHROMYCIN ANHYDROUS
     Indication: Bronchiolitis
     Dosage: 250 MG, THREE TIMES A WEEK
     Route: 065
     Dates: start: 2019
  2. AZITHROMYCIN ANHYDROUS [Suspect]
     Active Substance: AZITHROMYCIN ANHYDROUS
     Indication: Bronchiectasis
  3. BECLOMETHASONE DIPROPIONATE [Suspect]
     Active Substance: BECLOMETHASONE DIPROPIONATE
     Indication: Bronchiolitis
     Dosage: UNK
     Route: 065
     Dates: start: 2019
  4. BECLOMETHASONE DIPROPIONATE [Suspect]
     Active Substance: BECLOMETHASONE DIPROPIONATE
     Indication: Bronchiectasis
  5. FORMOTEROL [Suspect]
     Active Substance: FORMOTEROL
     Indication: Bronchiolitis
     Route: 065
     Dates: start: 2019
  6. FORMOTEROL [Suspect]
     Active Substance: FORMOTEROL
     Indication: Bronchiectasis
  7. GLYCOPYRRONIUM [Suspect]
     Active Substance: GLYCOPYRRONIUM
     Indication: Bronchiolitis
     Dosage: UNK
     Route: 065
     Dates: start: 2019
  8. GLYCOPYRRONIUM [Suspect]
     Active Substance: GLYCOPYRRONIUM
     Indication: Bronchiectasis
  9. DURVALUMAB [Concomitant]
     Active Substance: DURVALUMAB
     Indication: Lung squamous cell carcinoma stage III
     Dosage: 10 MG/KG EVERY 15 DAYS
     Route: 065
     Dates: start: 20181012, end: 20190329

REACTIONS (1)
  - Drug ineffective [Unknown]

NARRATIVE: CASE EVENT DATE: 20190101
